FAERS Safety Report 4838177-6 (Version None)
Quarter: 2005Q4

REPORT INFORMATION
  Report Type: 
  Country: None (occurrence: None)
  Receive Date: 20051128
  Receipt Date: 20051118
  Transmission Date: 20060501
  Serious: Yes (Other)
  Sender: FDA-Public Use
  Company Number: FR-ABBOTT-05P-056-0317724-00

PATIENT
  Age: 60 Year
  Sex: Male

DRUGS (1)
  1. DEPAKOTE [Suspect]
     Indication: MANIA
     Route: 048
     Dates: start: 20010101

REACTIONS (2)
  - BRAIN OEDEMA [None]
  - DIARRHOEA [None]
